FAERS Safety Report 15760922 (Version 2)
Quarter: 2018Q4

REPORT INFORMATION
  Report Type: Spontaneous
  Country: US (occurrence: US)
  Receive Date: 20181226
  Receipt Date: 20181231
  Transmission Date: 20190205
  Serious: No
  Sender: FDA-Public Use
  Company Number: US-PFIZER INC-2018528866

PATIENT
  Age: 45 Year
  Sex: Female

DRUGS (1)
  1. XELJANZ [Suspect]
     Active Substance: TOFACITINIB CITRATE
     Dosage: 5 MG, 2X/DAY
     Route: 048
     Dates: start: 20181121

REACTIONS (5)
  - Dry mouth [Unknown]
  - Aphonia [Unknown]
  - Respiratory disorder [Unknown]
  - Ageusia [Unknown]
  - Dry throat [Unknown]

NARRATIVE: CASE EVENT DATE: 2018
